FAERS Safety Report 11825465 (Version 3)
Quarter: 2016Q4

REPORT INFORMATION
  Report Type: Report from Study
  Country: IT (occurrence: IT)
  Receive Date: 20151211
  Receipt Date: 20161011
  Transmission Date: 20170206
  Serious: Yes (Other)
  Sender: FDA-Public Use
  Company Number: IT-ROCHE-1674682

PATIENT
  Age: 7 Year
  Sex: Male
  Weight: 27 kg

DRUGS (7)
  1. RITUXIMAB [Suspect]
     Active Substance: RITUXIMAB
     Indication: B-CELL LYMPHOMA
     Dosage: CUMULATIVE DOSE 1932
     Route: 042
     Dates: start: 20151116, end: 20151116
  2. HYDROCORTISONE. [Concomitant]
     Active Substance: HYDROCORTISONE
     Indication: ADRENAL INSUFFICIENCY
     Route: 042
     Dates: start: 20150912, end: 20151012
  3. CYTARABINE. [Suspect]
     Active Substance: CYTARABINE
     Dosage: CUMULATIVE DOSE OF 8910 MG.
     Route: 042
     Dates: start: 20151117
  4. CYTARABINE. [Suspect]
     Active Substance: CYTARABINE
     Dosage: CUMULATIVE DOSE 150 MG
     Route: 042
     Dates: start: 20151126
  5. ETOPOSIDE. [Suspect]
     Active Substance: ETOPOSIDE
     Dosage: CULULATIVE DOSE OF 594 MG
     Route: 042
     Dates: start: 20151117
  6. CYTARABINE. [Suspect]
     Active Substance: CYTARABINE
     Indication: B-CELL LYMPHOMA
     Route: 042
     Dates: start: 20151116
  7. ETOPOSIDE. [Suspect]
     Active Substance: ETOPOSIDE
     Indication: B-CELL LYMPHOMA
     Route: 042
     Dates: start: 20151116

REACTIONS (1)
  - Leukoencephalopathy [Recovered/Resolved]

NARRATIVE: CASE EVENT DATE: 20151119
